FAERS Safety Report 6839705-1 (Version None)
Quarter: 2010Q3

REPORT INFORMATION
  Report Type: 
  Country: None (occurrence: None)
  Receive Date: 20100708
  Receipt Date: 20100623
  Transmission Date: 20110219
  Serious: Yes (Death, Life-Threatening)
  Sender: FDA-Public Use
  Company Number: 2010002578

PATIENT
  Age: 76 Year
  Sex: Female

DRUGS (4)
  1. TARCEVA [Suspect]
     Indication: LUNG ADENOCARCINOMA
     Dosage: (150 MG, QD), ORAL
     Route: 048
     Dates: start: 20100422, end: 20100530
  2. AMLODIPINE BESYLATE [Concomitant]
  3. COLDRIN (CLOFEDANOL HYDROCHLORIDE) [Concomitant]
  4. MUCODYNE (CARBOCISTEINE) [Concomitant]

REACTIONS (3)
  - CHOLANGITIS [None]
  - DECREASED APPETITE [None]
  - INTERSTITIAL LUNG DISEASE [None]
